FAERS Safety Report 7908198 (Version 6)
Quarter: 2018Q3

REPORT INFORMATION
  Report Type: Spontaneous
  Country: IT (occurrence: IT)
  Receive Date: 20110421
  Receipt Date: 20180814
  Transmission Date: 20181010
  Serious: Yes (Death)
  Sender: FDA-Public Use
  Company Number: IT-PFIZER INC-2011086198

PATIENT
  Age: 68 Year
  Sex: Male

DRUGS (1)
  1. SUTENT [Suspect]
     Active Substance: SUNITINIB MALATE
     Indication: RENAL NEOPLASM
     Dosage: 37.5 MG, ONCE DAIY
     Route: 048
     Dates: start: 20100701, end: 20110403

REACTIONS (2)
  - Hypertension [Not Recovered/Not Resolved]
  - Pericardial haemorrhage [Fatal]

NARRATIVE: CASE EVENT DATE: 2011
